FAERS Safety Report 6268307-3 (Version None)
Quarter: 2009Q3

REPORT INFORMATION
  Report Type: 
  Country: None (occurrence: None)
  Receive Date: 20090714
  Receipt Date: 20090714
  Transmission Date: 20100115
  Serious: No
  Sender: FDA-Public Use
  Company Number: None

PATIENT
  Age: 50 Year
  Sex: Female
  Weight: 105.2345 kg

DRUGS (2)
  1. CLONAZEPAM [Suspect]
     Indication: ANXIETY
     Dosage: 0.5 MG 4X PO
     Route: 048
     Dates: start: 20090613, end: 20090713
  2. CLONAZEPAM [Suspect]
     Indication: PANIC ATTACK
     Dosage: 0.5 MG 4X PO
     Route: 048
     Dates: start: 20090613, end: 20090713

REACTIONS (3)
  - ANXIETY [None]
  - BREAST PAIN [None]
  - PRODUCT QUALITY ISSUE [None]
